FAERS Safety Report 23751834 (Version 1)
Quarter: 2024Q2

REPORT INFORMATION
  Report Type: Spontaneous
  Country: TR (occurrence: TR)
  Receive Date: 20240417
  Receipt Date: 20240417
  Transmission Date: 20240716
  Serious: Yes (Death, Other)
  Sender: FDA-Public Use
  Company Number: TR-PFIZER INC-PV202400049259

PATIENT
  Sex: Male
  Weight: 1.85 kg

DRUGS (13)
  1. MEROPENEM [Suspect]
     Active Substance: MEROPENEM
     Indication: Staphylococcal infection
     Dosage: UNK
  2. MEROPENEM [Suspect]
     Active Substance: MEROPENEM
     Indication: Sepsis
  3. FLUCONAZOLE [Suspect]
     Active Substance: FLUCONAZOLE
     Indication: Prophylaxis
     Dosage: UNK
  4. FLUCONAZOLE [Suspect]
     Active Substance: FLUCONAZOLE
     Indication: Sepsis
  5. LINEZOLID [Suspect]
     Active Substance: LINEZOLID
     Indication: Enterococcal infection
  6. VANCOMYCIN [Suspect]
     Active Substance: VANCOMYCIN
     Indication: Staphylococcal infection
     Dosage: UNK
  7. VANCOMYCIN [Suspect]
     Active Substance: VANCOMYCIN
     Indication: Sepsis
  8. LANOLIN [Concomitant]
     Active Substance: LANOLIN
     Indication: Ichthyosis
     Dosage: UNK
     Route: 061
  9. PARAFFIN [Concomitant]
     Active Substance: PARAFFIN
     Indication: Ichthyosis
     Dosage: UNK
     Route: 061
  10. ARTIFICIAL TEARS [CARMELLOSE SODIUM] [Concomitant]
     Indication: Ichthyosis
     Dosage: UNK
  11. AMPICILLIN [Concomitant]
     Active Substance: AMPICILLIN
     Indication: Ichthyosis
     Dosage: UNK
  12. GENTAMICIN [Concomitant]
     Active Substance: GENTAMICIN
     Indication: Ichthyosis
     Dosage: UNK
  13. CAFFEINE CITRATE [Concomitant]
     Active Substance: CAFFEINE CITRATE
     Indication: Apnoea
     Dosage: UNK
     Route: 042

REACTIONS (1)
  - Drug ineffective [Fatal]
